FAERS Safety Report 21008458 (Version 1)
Quarter: 2022Q2

REPORT INFORMATION
  Report Type: Spontaneous
  Country: US (occurrence: US)
  Receive Date: 20220627
  Receipt Date: 20220627
  Transmission Date: 20220720
  Serious: No
  Sender: FDA-Public Use
  Company Number: US-PURACAP-US-2022EPCSPO00863

PATIENT
  Age: 68 Year
  Sex: Female
  Weight: 127 kg

DRUGS (5)
  1. BENZONATATE [Suspect]
     Active Substance: BENZONATATE
     Indication: Cough
     Route: 048
     Dates: start: 20220608, end: 20220610
  2. BENZONATATE [Suspect]
     Active Substance: BENZONATATE
  3. SYNTHROID [Concomitant]
     Active Substance: LEVOTHYROXINE SODIUM
     Indication: Product used for unknown indication
     Route: 065
  4. CRESTOR [Concomitant]
     Active Substance: ROSUVASTATIN CALCIUM
     Indication: Product used for unknown indication
     Route: 065
  5. CEFUROXIME [Concomitant]
     Active Substance: CEFUROXIME
     Indication: Product used for unknown indication
     Route: 065

REACTIONS (3)
  - Cough [Recovered/Resolved]
  - Insomnia [Recovered/Resolved]
  - Product complaint [Unknown]

NARRATIVE: CASE EVENT DATE: 20220608
